FAERS Safety Report 11517247 (Version 1)
Quarter: 2015Q3

REPORT INFORMATION
  Report Type: Spontaneous
  Country: US (occurrence: None)
  Receive Date: 20150916
  Receipt Date: 20150916
  Transmission Date: 20151125
  Serious: No
  Sender: FDA-Public Use
  Company Number: None

PATIENT
  Age: 71 Year
  Sex: Female
  Weight: 81.65 kg

DRUGS (12)
  1. TRAZODONE [Suspect]
     Active Substance: TRAZODONE HYDROCHLORIDE
     Indication: DEPRESSION
  2. C [Concomitant]
  3. TRAZODONE [Suspect]
     Active Substance: TRAZODONE HYDROCHLORIDE
     Indication: ANXIETY
  4. BENAZEPRIL [Concomitant]
     Active Substance: BENAZEPRIL HYDROCHLORIDE
  5. B-50 [Concomitant]
  6. MSM [Concomitant]
     Active Substance: DIMETHYL SULFONE
  7. ZINC [Concomitant]
     Active Substance: ZINC\ZINC CHLORIDE
  8. MULTI VITAMIN [Concomitant]
     Active Substance: VITAMINS
  9. NIFEDIPINE. [Concomitant]
     Active Substance: NIFEDIPINE
  10. CLONIDINE. [Concomitant]
     Active Substance: CLONIDINE
  11. XANAX [Concomitant]
     Active Substance: ALPRAZOLAM
  12. MILK THISTLE [Concomitant]
     Active Substance: MILK THISTLE

REACTIONS (1)
  - Blood blister [None]

NARRATIVE: CASE EVENT DATE: 20150904
